FAERS Safety Report 9049919 (Version 1)
Quarter: 2013Q1

REPORT INFORMATION
  Report Type: Spontaneous
  Country: US (occurrence: US)
  Receive Date: 20130205
  Receipt Date: 20130205
  Transmission Date: 20140127
  Serious: Yes (Other)
  Sender: FDA-Public Use
  Company Number: US-AMGEN-USASP2013003798

PATIENT
  Age: 51 Year
  Sex: Female
  Weight: 50.79 kg

DRUGS (5)
  1. NEULASTA [Suspect]
     Indication: PRODUCT USED FOR UNKNOWN INDICATION
     Dosage: 6 MG, ONCE
     Route: 058
     Dates: start: 20130113, end: 20130113
  2. DOXORUBICIN [Concomitant]
     Indication: BREAST CANCER
     Dosage: UNK, Q2WK
     Route: 042
     Dates: start: 20130111, end: 20130111
  3. CYCLOPHOSPHAMIDE [Concomitant]
     Indication: BREAST CANCER
     Dosage: 924 UNK, Q2WK
     Route: 042
     Dates: start: 20130111
  4. DEXAMETHASONE [Concomitant]
     Indication: NAUSEA
     Dosage: 8 MG, UNK
     Route: 048
     Dates: start: 20130112, end: 20130114
  5. DEXAMETHASONE [Concomitant]
     Dosage: 12 MG, UNK
     Dates: start: 20130111

REACTIONS (5)
  - Hypersensitivity [Recovered/Resolved]
  - Swollen tongue [Recovered/Resolved]
  - Urticaria [Recovered/Resolved]
  - Pruritus [Recovered/Resolved]
  - Lip swelling [Recovered/Resolved]
